FAERS Safety Report 4452592-4 (Version None)
Quarter: 2004Q3

REPORT INFORMATION
  Report Type: 
  Country: None (occurrence: None)
  Receive Date: 20040913
  Receipt Date: 20040726
  Transmission Date: 20050211
  Serious: No
  Sender: FDA-Public Use
  Company Number: 2004-BP-06251BP(0)

PATIENT
  Age: 73 Year
  Sex: Male

DRUGS (10)
  1. SPIRIVA [Suspect]
     Indication: CHRONIC OBSTRUCTIVE AIRWAYS DISEASE
     Dosage: 18 MCG (18 MCG,1 IN 1 D), IH
     Dates: start: 20040624
  2. ADVAIR (SERETIDE MITE) [Suspect]
     Indication: CHRONIC OBSTRUCTIVE AIRWAYS DISEASE
     Dates: start: 20040601
  3. MEDROL [Suspect]
     Indication: CHRONIC OBSTRUCTIVE AIRWAYS DISEASE
     Dates: start: 20040601
  4. COMBIVENT [Concomitant]
  5. ACETYLSALICYLIC ACID SRT [Concomitant]
  6. LOPRESSOR [Concomitant]
  7. VITAMINS (VITAMINS) [Concomitant]
  8. ZANTAC [Concomitant]
  9. SONATA [Concomitant]
  10. NORVASC [Concomitant]

REACTIONS (1)
  - HOARSENESS [None]
